FAERS Safety Report 14351649 (Version 1)
Quarter: 2018Q1

REPORT INFORMATION
  Report Type: Report from Study
  Country: US (occurrence: US)
  Receive Date: 20180104
  Receipt Date: 20180104
  Transmission Date: 20180509
  Serious: Yes (Hospitalization, Other)
  Sender: FDA-Public Use
  Company Number: US-GILEAD-2018-0313571

PATIENT
  Age: 24 Year
  Sex: Female

DRUGS (24)
  1. POTASSIUM CHLORIDE. [Concomitant]
     Active Substance: POTASSIUM CHLORIDE
  2. PROCTOMED [Concomitant]
  3. POTASSIUM [Concomitant]
     Active Substance: POTASSIUM
  4. AMBRISENTAN [Suspect]
     Active Substance: AMBRISENTAN
     Indication: PULMONARY HYPERTENSION
     Dosage: 10 MG, QD
     Route: 065
  5. TYVASO [Concomitant]
     Active Substance: TREPROSTINIL
  6. METOLAZONE. [Concomitant]
     Active Substance: METOLAZONE
  7. MAGNESIUM OXIDE. [Concomitant]
     Active Substance: MAGNESIUM OXIDE
  8. FUROSEMIDE. [Concomitant]
     Active Substance: FUROSEMIDE
  9. DIGOX                              /00017701/ [Concomitant]
  10. SENNA                              /00142201/ [Concomitant]
     Active Substance: SENNA LEAF
  11. ONDANSETRON [Concomitant]
     Active Substance: ONDANSETRON
  12. ADCIRCA [Concomitant]
     Active Substance: TADALAFIL
  13. REMODULIN [Concomitant]
     Active Substance: TREPROSTINIL
  14. APRISO [Concomitant]
     Active Substance: MESALAMINE
  15. FERROUS GLUCONATE [Concomitant]
     Active Substance: FERROUS GLUCONATE
  16. VITAMIN C [Concomitant]
     Active Substance: ASCORBIC ACID
  17. RANITIDINE. [Concomitant]
     Active Substance: RANITIDINE
  18. WARFARIN [Concomitant]
     Active Substance: WARFARIN
  19. PREDNISONE. [Concomitant]
     Active Substance: PREDNISONE
  20. CANASA [Concomitant]
     Active Substance: MESALAMINE
  21. CARAFATE [Concomitant]
     Active Substance: SUCRALFATE
  22. LASIX [Concomitant]
     Active Substance: FUROSEMIDE
  23. FAMOTIDINE. [Concomitant]
     Active Substance: FAMOTIDINE
  24. IRON [Concomitant]
     Active Substance: IRON

REACTIONS (2)
  - Pulmonary arterial hypertension [Recovering/Resolving]
  - Colitis ulcerative [Recovering/Resolving]
